FAERS Safety Report 4488409-1 (Version None)
Quarter: 2004Q4

REPORT INFORMATION
  Report Type: 
  Country: None (occurrence: None)
  Receive Date: 20041026
  Receipt Date: 20041015
  Transmission Date: 20050328
  Serious: Yes (Hospitalization)
  Sender: FDA-Public Use
  Company Number: 176346

PATIENT
  Age: 46 Year
  Sex: Female
  Weight: 84.8226 kg

DRUGS (6)
  1. AVONEX [Suspect]
     Indication: MULTIPLE SCLEROSIS
     Dosage: 30 MCG QW IM
     Route: 030
     Dates: start: 20021001, end: 20030501
  2. AVONEX [Suspect]
     Indication: MULTIPLE SCLEROSIS
     Dosage: 30 MCG QW IM
     Route: 030
     Dates: start: 20030719
  3. ZESTRIL [Concomitant]
  4. PREMARIN [Concomitant]
  5. INSULIN [Concomitant]
  6. IBUPROFEN [Concomitant]

REACTIONS (4)
  - ANAEMIA [None]
  - ATRIOVENTRICULAR BLOCK [None]
  - CHEST PAIN [None]
  - PALPITATIONS [None]
